FAERS Safety Report 6764252-5 (Version None)
Quarter: 2010Q2

REPORT INFORMATION
  Report Type: 
  Country: None (occurrence: None)
  Receive Date: 20100608
  Receipt Date: 20100602
  Transmission Date: 20101027
  Serious: Yes (Hospitalization)
  Sender: FDA-Public Use
  Company Number: JHP201000177

PATIENT
  Age: 24 Year
  Sex: Male

DRUGS (8)
  1. COLY-MYCIN M [Suspect]
     Indication: OCCUPATIONAL EXPOSURE TO DRUG
     Dosage: , INHALATION
     Route: 055
  2. METHIONINE CAP [Concomitant]
  3. BROMHEXINE (BROMHEXINE HYDROCHLORIDE) [Concomitant]
  4. AMOXICILLIN TRIHYDRATE [Concomitant]
  5. NEOMYCIN [Concomitant]
  6. SODIUM BICARBONATE IN PLASTIC CONTAINER [Concomitant]
  7. MANGANESE SULFATE (MANGANESE SULFATE) [Concomitant]
  8. STARCH (STARCH) [Concomitant]

REACTIONS (1)
  - ASTHMA [None]
